FAERS Safety Report 18503520 (Version 3)
Quarter: 2021Q3

REPORT INFORMATION
  Report Type: Report from Study
  Country: US (occurrence: US)
  Receive Date: 20201113
  Receipt Date: 20210917
  Transmission Date: 20211014
  Serious: Yes (Hospitalization)
  Sender: FDA-Public Use
  Company Number: US-PFIZER INC-2019-05381

PATIENT
  Age: 64 Year
  Sex: Male
  Weight: 88 kg

DRUGS (12)
  1. TRIAMCINOLONE [Concomitant]
     Active Substance: TRIAMCINOLONE
     Indication: DERMATITIS
     Dosage: 0.1 %, 2X/DAY
     Route: 061
     Dates: start: 20170927
  2. VICTOZA [Concomitant]
     Active Substance: LIRAGLUTIDE
     Indication: DIABETES MELLITUS
     Dosage: 1.8 UG/ML
     Dates: start: 20180908
  3. METFORMIN [Concomitant]
     Active Substance: METFORMIN HYDROCHLORIDE
     Indication: DIABETES MELLITUS
     Dosage: 1000 MG, 2X/DAY
     Route: 048
     Dates: start: 20120515
  4. NACL [Concomitant]
     Active Substance: SODIUM CHLORIDE
     Dosage: 1000 ML, 1X/DAY
     Route: 042
     Dates: start: 20190327, end: 20190328
  5. ENCORAFENIB [Suspect]
     Active Substance: ENCORAFENIB
     Indication: SYNOVIAL SARCOMA
     Dosage: 450 MG, 1X/DAY
     Route: 048
     Dates: start: 20190219, end: 20190329
  6. METOPROLOL. [Concomitant]
     Active Substance: METOPROLOL
     Dosage: 25 MG, 1X/DAY
     Route: 048
     Dates: start: 20180917
  7. SERTRALINE [Concomitant]
     Active Substance: SERTRALINE HYDROCHLORIDE
     Indication: ANXIETY
     Dosage: 50 MG, 1X/DAY
     Route: 048
     Dates: start: 20111027
  8. LANTUS [Concomitant]
     Active Substance: INSULIN GLARGINE
     Indication: DIABETES MELLITUS
     Dosage: 100000 IU/L, 1X/DAY
     Route: 058
     Dates: start: 20160802
  9. ONDANSETRON [Concomitant]
     Active Substance: ONDANSETRON
     Dosage: 8 MG, 1X/DAY
     Route: 042
     Dates: start: 20190328, end: 20190328
  10. ONE A DAY MENS [Concomitant]
     Active Substance: VITAMINS
     Dosage: UNK
  11. BINIMETINIB [Suspect]
     Active Substance: BINIMETINIB
     Indication: SYNOVIAL SARCOMA
     Dosage: 75 MG, 2X/DAY
     Route: 048
     Dates: start: 20190219, end: 20190329
  12. ACETAMINOPHEN. [Concomitant]
     Active Substance: ACETAMINOPHEN
     Indication: HEADACHE
     Dosage: 500 MG, AS NEEDED
     Route: 048
     Dates: start: 20190311

REACTIONS (1)
  - Influenza like illness [Recovered/Resolved]

NARRATIVE: CASE EVENT DATE: 20190329
